FAERS Safety Report 21760452 (Version 4)
Quarter: 2023Q1

REPORT INFORMATION
  Report Type: Spontaneous
  Country: HR (occurrence: HR)
  Receive Date: 20221221
  Receipt Date: 20230213
  Transmission Date: 20230417
  Serious: Yes (Hospitalization, Other)
  Sender: FDA-Public Use
  Company Number: HR-SA-SAC20221219001378

PATIENT
  Age: 62 Year
  Sex: Male

DRUGS (9)
  1. MYOZYME [Suspect]
     Active Substance: ALGLUCOSIDASE ALFA
     Indication: Glycogen storage disease type II
     Dosage: UNK
     Route: 042
     Dates: start: 2019, end: 202011
  2. MYOZYME [Suspect]
     Active Substance: ALGLUCOSIDASE ALFA
     Dosage: UNK
     Route: 041
  3. METHOTREXATE [Concomitant]
     Active Substance: METHOTREXATE
     Dosage: 15 MG, QW (DIDN^T TAKE IT LIKE THAT)
     Route: 058
  4. METHOTREXATE [Concomitant]
     Active Substance: METHOTREXATE
     Dosage: UNK UNK, Q10D (TAKES 10-15MG EVERY 10 DAYS)
     Route: 058
  5. DEXAMETHASONE [Concomitant]
     Active Substance: DEXAMETHASONE
     Indication: Spinal cord compression
     Dosage: 4 MG, BID (OCCASIONALLY WITHIN 2 DAYS )
  6. KLAVOCIN [AMOXICILLIN;CLAVULANIC ACID] [Concomitant]
     Dosage: 2 DF, QD (FROM TUESDAY)
     Route: 048
  7. ENOXAPARIN SODIUM [Concomitant]
     Active Substance: ENOXAPARIN SODIUM
     Dosage: 1 ML
     Route: 058
  8. ZOLPIDEM TARTRATE [Concomitant]
     Active Substance: ZOLPIDEM TARTRATE
     Dosage: UNK
  9. PANTOPRAZOLE SODIUM [Concomitant]
     Active Substance: PANTOPRAZOLE SODIUM
     Dosage: 1 DF, 1X

REACTIONS (56)
  - Pulmonary embolism [Recovered/Resolved]
  - Feeling abnormal [Recovered/Resolved]
  - Dyskinesia [Recovered/Resolved]
  - Oxygen saturation decreased [Recovered/Resolved]
  - Asphyxia [Recovered/Resolved]
  - Cyanosis [Recovered/Resolved]
  - Hypopnoea [Recovered/Resolved]
  - Crepitations [Recovered/Resolved]
  - Vena cava thrombosis [Recovered/Resolved]
  - Subclavian vein thrombosis [Recovered/Resolved]
  - Brachiocephalic vein thrombosis [Recovered/Resolved]
  - Psoriatic arthropathy [Recovered/Resolved]
  - Pneumonia [Unknown]
  - Cor pulmonale acute [Unknown]
  - Diastolic dysfunction [Unknown]
  - Blood fibrinogen increased [Unknown]
  - Blood creatinine decreased [Unknown]
  - Alanine aminotransferase increased [Unknown]
  - Gamma-glutamyltransferase increased [Unknown]
  - Protein total decreased [Unknown]
  - C-reactive protein increased [Unknown]
  - Prostatic specific antigen increased [Unknown]
  - Cytokeratin 19 increased [Unknown]
  - Blood selenium increased [Unknown]
  - Haemoglobin decreased [Unknown]
  - Haematocrit decreased [Unknown]
  - Mean cell volume increased [Unknown]
  - Mean cell haemoglobin concentration decreased [Unknown]
  - Neutrophil count increased [Unknown]
  - Lymphocyte count decreased [Unknown]
  - Blood albumin decreased [Unknown]
  - Fibrin D dimer increased [Unknown]
  - Blood lactate dehydrogenase increased [Unknown]
  - Amylase increased [Unknown]
  - Brain natriuretic peptide increased [Unknown]
  - Procalcitonin increased [Unknown]
  - Asthenia [Unknown]
  - Gait disturbance [Unknown]
  - Blood glucose increased [Unknown]
  - Confusional state [Recovered/Resolved]
  - Axillary vein thrombosis [Recovered/Resolved]
  - Peripheral swelling [Recovered/Resolved]
  - Condition aggravated [Recovered/Resolved]
  - Inflammatory marker increased [Recovered/Resolved]
  - COVID-19 [Recovered/Resolved]
  - Jugular vein thrombosis [Recovered/Resolved]
  - Psoriasis [Recovered/Resolved]
  - Renal neoplasm [Unknown]
  - Aortic aneurysm [Unknown]
  - Erythema [Recovered/Resolved]
  - Cough [Unknown]
  - Blood pressure decreased [Recovered/Resolved]
  - Heart rate increased [Recovered/Resolved]
  - Pruritus [Recovered/Resolved]
  - Rash [Recovered/Resolved]
  - Drug specific antibody present [Unknown]

NARRATIVE: CASE EVENT DATE: 20220101
